FAERS Safety Report 4929693-7 (Version None)
Quarter: 2006Q1

REPORT INFORMATION
  Report Type: 
  Country: None (occurrence: None)
  Receive Date: 20060224
  Receipt Date: 20060216
  Transmission Date: 20060701
  Serious: Yes (Disabling, Other)
  Sender: FDA-Public Use
  Company Number: 2004004555

PATIENT
  Age: 46 Year
  Sex: Male
  Weight: 95.2554 kg

DRUGS (2)
  1. NARDIL [Suspect]
     Indication: ANXIETY
     Dosage: 45 MG (45 MG 1 IN 1 D) ORAL
     Route: 048
     Dates: start: 19850101
  2. XANAX [Suspect]
     Indication: PANIC ATTACK
     Dosage: 3 MG 1 MG 3 IN 1 D ORAL
     Route: 048
     Dates: start: 19850101

REACTIONS (21)
  - AMNESIA [None]
  - ARTIFICIAL CROWN PROCEDURE [None]
  - ASTHENIA [None]
  - BEDRIDDEN [None]
  - BRAIN DAMAGE [None]
  - CONDITION AGGRAVATED [None]
  - CONFUSIONAL STATE [None]
  - DEPENDENCE [None]
  - DEPRESSION [None]
  - DRUG INEFFECTIVE [None]
  - DRY MOUTH [None]
  - GASTROINTESTINAL DISORDER [None]
  - MEMORY IMPAIRMENT [None]
  - MOUTH BREATHING [None]
  - MUSCULAR WEAKNESS [None]
  - PANIC ATTACK [None]
  - PANIC DISORDER [None]
  - RAPID EYE MOVEMENTS SLEEP ABNORMAL [None]
  - SEXUAL DYSFUNCTION [None]
  - SLEEP APNOEA SYNDROME [None]
  - SOMNOLENCE [None]
